FAERS Safety Report 4938931-6 (Version None)
Quarter: 2006Q1

REPORT INFORMATION
  Report Type: 
  Country: None (occurrence: None)
  Receive Date: 20060309
  Receipt Date: 20050114
  Transmission Date: 20060701
  Serious: Yes (Disabling, Other)
  Sender: FDA-Public Use
  Company Number: US-MERCK-0501USA02700

PATIENT
  Age: 40 Year
  Sex: Female
  Weight: 78 kg

DRUGS (4)
  1. VIOXX [Suspect]
     Indication: BACK PAIN
     Route: 048
     Dates: start: 19990101, end: 20011001
  2. VIOXX [Suspect]
     Route: 048
     Dates: start: 19990101, end: 20011001
  3. VIOXX [Suspect]
     Indication: ARTHRALGIA
     Route: 048
     Dates: start: 19990101, end: 20011001
  4. VIOXX [Suspect]
     Route: 048
     Dates: start: 19990101, end: 20011001

REACTIONS (6)
  - ANXIETY [None]
  - BACK INJURY [None]
  - CARDIOVASCULAR DISORDER [None]
  - CEREBROVASCULAR ACCIDENT [None]
  - OVERDOSE [None]
  - TRANSIENT ISCHAEMIC ATTACK [None]
